FAERS Safety Report 9612931 (Version 4)
Quarter: 2015Q1

REPORT INFORMATION
  Report Type: Spontaneous
  Country: US (occurrence: US)
  Receive Date: 20131010
  Receipt Date: 20150122
  Transmission Date: 20150721
  Serious: Yes (Death, Life-Threatening, Hospitalization, Other)
  Sender: FDA-Public Use
  Company Number: US-MERCK-1310USA004256

PATIENT
  Sex: Male

DRUGS (3)
  1. JANUVIA [Suspect]
     Active Substance: SITAGLIPTIN PHOSPHATE
     Indication: TYPE 2 DIABETES MELLITUS
     Dosage: 100 MG, QD
     Route: 048
     Dates: start: 20061204, end: 20080427
  2. BYETTA [Suspect]
     Active Substance: EXENATIDE
     Indication: TYPE 2 DIABETES MELLITUS
     Dosage: 5 MICROGRAM, BID
     Dates: start: 20070217, end: 20070319
  3. BYETTA [Suspect]
     Active Substance: EXENATIDE
     Dosage: 10 MICROGRAM, BID
     Dates: start: 20070403, end: 20070503

REACTIONS (13)
  - Cardiomyopathy [Unknown]
  - Hyperlipidaemia [Unknown]
  - Diabetes mellitus inadequate control [Unknown]
  - Cholecystectomy [Unknown]
  - Sinus node dysfunction [Unknown]
  - Back pain [Unknown]
  - Atrial fibrillation [Unknown]
  - Adenocarcinoma pancreas [Fatal]
  - Pancreatitis [Unknown]
  - Cardiac disorder [Not Recovered/Not Resolved]
  - Cardiac failure [Unknown]
  - Transient ischaemic attack [Unknown]
  - Cataract operation [Unknown]

NARRATIVE: CASE EVENT DATE: 201101
